FAERS Safety Report 10459948 (Version 2)
Quarter: 2014Q3

REPORT INFORMATION
  Report Type: Spontaneous
  Country: ZA (occurrence: ZA)
  Receive Date: 20140917
  Receipt Date: 20140917
  Transmission Date: 20150326
  Serious: Yes (Hospitalization)
  Sender: FDA-Public Use
  Company Number: ZA-ABBVIE-14P-143-1214750-00

PATIENT
  Age: 56 Year
  Sex: Female

DRUGS (3)
  1. HUMIRA [Suspect]
     Active Substance: ADALIMUMAB
     Dosage: WK2
     Route: 058
     Dates: start: 201403, end: 201403
  2. HUMIRA [Suspect]
     Active Substance: ADALIMUMAB
     Indication: CROHN^S DISEASE
     Dosage: WK0
     Route: 058
     Dates: start: 20140307, end: 20140307
  3. HUMIRA [Suspect]
     Active Substance: ADALIMUMAB
     Dosage: WK4 ONWARDS
     Route: 058
     Dates: start: 201404

REACTIONS (10)
  - Vaginal discharge [Unknown]
  - Vaginal fistula [Unknown]
  - Septic shock [Recovering/Resolving]
  - Urinary tract infection [Recovered/Resolved]
  - Pyrexia [Recovered/Resolved]
  - Cyst [Unknown]
  - Septic shock [Recovering/Resolving]
  - Urinary tract infection [Recovering/Resolving]
  - Cardiac disorder [Unknown]
  - Abscess [Unknown]

NARRATIVE: CASE EVENT DATE: 201403
